FAERS Safety Report 22351652 (Version 1)
Quarter: 2023Q2

REPORT INFORMATION
  Report Type: Spontaneous
  Country: US (occurrence: US)
  Receive Date: 20230522
  Receipt Date: 20230522
  Transmission Date: 20230722
  Serious: Yes (Other)
  Sender: FDA-Public Use
  Company Number: US-TAKEDA-2023TUS049936

PATIENT
  Age: 5 Decade
  Sex: Male

DRUGS (5)
  1. MIDODRINE [Suspect]
     Active Substance: MIDODRINE
     Indication: Orthostatic hypotension
     Dosage: 10 MILLIGRAM, BID
     Route: 065
  2. MIDODRINE [Suspect]
     Active Substance: MIDODRINE
     Indication: Sinus bradycardia
     Dosage: 10 MILLIGRAM, Q8HR
     Route: 065
  3. MIDODRINE [Suspect]
     Active Substance: MIDODRINE
     Dosage: 20 MILLIGRAM, TID
     Route: 065
  4. DOPAMINE [Suspect]
     Active Substance: DOPAMINE HYDROCHLORIDE
     Indication: Sinus bradycardia
     Dosage: UNK
     Route: 042
  5. DOPAMINE [Suspect]
     Active Substance: DOPAMINE HYDROCHLORIDE
     Indication: Hypotension

REACTIONS (2)
  - Sinus bradycardia [Recovering/Resolving]
  - Blood pressure decreased [Recovering/Resolving]
